FAERS Safety Report 7562031-2 (Version None)
Quarter: 2011Q2

REPORT INFORMATION
  Report Type: 
  Country: None (occurrence: None)
  Receive Date: 20110622
  Receipt Date: 20080604
  Transmission Date: 20111010
  Serious: Yes (Death)
  Sender: FDA-Public Use
  Company Number: PHHY2008DE37548

PATIENT
  Sex: Female
  Weight: 112 kg

DRUGS (2)
  1. ASPIRIN [Concomitant]
  2. SANDOSTATIN LAR [Suspect]
     Indication: ACROMEGALY
     Dosage: 20 MG, UNK
     Route: 030
     Dates: start: 20070528

REACTIONS (5)
  - DEATH [None]
  - SOMNOLENCE [None]
  - DEPRESSION [None]
  - VERTIGO [None]
  - MALAISE [None]
